FAERS Safety Report 4290067-6 (Version None)
Quarter: 2004Q1

REPORT INFORMATION
  Report Type: 
  Country: None (occurrence: None)
  Receive Date: 20040126
  Receipt Date: 20031001
  Transmission Date: 20041129
  Serious: No
  Sender: FDA-Public Use
  Company Number: USA031048837

PATIENT
  Age: 57 Year
  Sex: Male

DRUGS (2)
  1. FORTEO [Suspect]
     Indication: OSTEOPOROSIS
     Dates: start: 20030819
  2. FORTEO [Suspect]
     Indication: SPINAL FRACTURE
     Dates: start: 20030819

REACTIONS (4)
  - DIZZINESS [None]
  - DYSGEUSIA [None]
  - HEADACHE [None]
  - HEART RATE INCREASED [None]
